FAERS Safety Report 9903978 (Version 1)
Quarter: 2014Q1

REPORT INFORMATION
  Report Type: Spontaneous
  Country: US (occurrence: US)
  Receive Date: 20140218
  Receipt Date: 20140218
  Transmission Date: 20141002
  Serious: No
  Sender: FDA-Public Use
  Company Number: US-BIOGENIDEC-2014BI012056

PATIENT
  Sex: Female

DRUGS (15)
  1. TECFIDERA [Suspect]
     Indication: MULTIPLE SCLEROSIS
     Route: 048
  2. ACYCLOVIR [Concomitant]
  3. ADVIL [Concomitant]
  4. BABY ASPIRIN [Concomitant]
  5. IMITREX [Concomitant]
  6. LIPITOR [Concomitant]
  7. NEURONTIN [Concomitant]
  8. PROVIGIL [Concomitant]
  9. QUINAPRIL HCL [Concomitant]
  10. SIMVASTATIN [Concomitant]
  11. VALTREX [Concomitant]
  12. VERAPAMIL HCL [Concomitant]
  13. VESICARE [Concomitant]
  14. VITAMIN B-6 [Concomitant]
  15. VITAMIN C [Concomitant]

REACTIONS (1)
  - Onychoclasis [Unknown]
